FAERS Safety Report 14809053 (Version 1)
Quarter: 2018Q2

REPORT INFORMATION
  Report Type: Spontaneous
  Country: US (occurrence: US)
  Receive Date: 20180425
  Receipt Date: 20180425
  Transmission Date: 20180711
  Serious: No
  Sender: FDA-Public Use
  Company Number: US-009507513-1804USA010464

PATIENT
  Sex: Female

DRUGS (1)
  1. DULERA [Suspect]
     Active Substance: FORMOTEROL FUMARATE DIHYDRATE\MOMETASONE FUROATE
     Dosage: 100 MICROGRAM/5 MICROGRAM, 4 PUFFS, TWICE DAILY, ROUTE: ORAL INHALATION

REACTIONS (4)
  - Drug dose omission [Unknown]
  - Overdose [Unknown]
  - Product quality issue [Unknown]
  - No adverse event [Unknown]
